FAERS Safety Report 9751318 (Version 1)
Quarter: 2013Q4

REPORT INFORMATION
  Report Type: Spontaneous
  Country: US (occurrence: US)
  Receive Date: 20131212
  Receipt Date: 20131212
  Transmission Date: 20140711
  Serious: No
  Sender: FDA-Public Use
  Company Number: US-BIOGENIDEC-2013BI097676

PATIENT
  Age: 42 Year
  Sex: Female

DRUGS (20)
  1. TECFIDERA [Suspect]
     Indication: MULTIPLE SCLEROSIS
     Route: 048
     Dates: start: 20130912
  2. TECFIDERA [Suspect]
     Indication: MULTIPLE SCLEROSIS
     Route: 048
  3. HUMULIN R [Concomitant]
  4. CYMBALTA [Concomitant]
  5. PRINIVIL [Concomitant]
  6. SOLU-MEDROL (PF) [Concomitant]
  7. XANAX [Concomitant]
  8. ANTIVERT [Concomitant]
  9. GLUCOTROL [Concomitant]
  10. ZOLOFT [Concomitant]
  11. GLUCOPHAGE [Concomitant]
  12. LANTUS [Concomitant]
  13. FENTANYL [Concomitant]
  14. MORPHINE SULF ER [Concomitant]
  15. CINNAMON [Concomitant]
  16. ASPIRIN [Concomitant]
  17. EQL IBUPROFEN [Concomitant]
  18. CVS VITAMIN E [Concomitant]
  19. SENOKOT-S [Concomitant]
  20. COLACE-T [Concomitant]

REACTIONS (2)
  - Fatigue [Not Recovered/Not Resolved]
  - Flushing [Unknown]
